FAERS Safety Report 4308744-7 (Version None)
Quarter: 2004Q1

REPORT INFORMATION
  Report Type: 
  Country: None (occurrence: None)
  Receive Date: 20040301
  Receipt Date: 20040301
  Transmission Date: 20041129
  Serious: Yes (Hospitalization)
  Sender: FDA-Public Use
  Company Number: None

PATIENT
  Sex: Male

DRUGS (2)
  1. AMPICILLIN [Suspect]
     Indication: OESOPHAGOGASTRODUODENOSCOPY
     Dosage: 2 GRAM IV X 1
     Route: 042
  2. AMPICILLIN [Suspect]
     Indication: PROPHYLAXIS
     Dosage: 2 GRAM IV X 1
     Route: 042

REACTIONS (2)
  - NEPHRITIS INTERSTITIAL [None]
  - RENAL TUBULAR NECROSIS [None]
